FAERS Safety Report 20081753 (Version 2)
Quarter: 2021Q4

REPORT INFORMATION
  Report Type: Spontaneous
  Country: US (occurrence: US)
  Receive Date: 20211117
  Receipt Date: 20211123
  Transmission Date: 20220303
  Serious: Yes (Other)
  Sender: FDA-Public Use
  Company Number: US-RECKITT BENCKISER HEALTHCARE INT LIMITED-RB-98685-2021

PATIENT
  Age: 70 Year
  Sex: Female

DRUGS (1)
  1. MUCINEX FAST-MAX COLD, FLU AND SORE THROAT MAXIMUM STRENGTH [Suspect]
     Active Substance: ACETAMINOPHEN\DEXTROMETHORPHAN HYDROBROMIDE\GUAIFENESIN\PHENYLEPHRINE HYDROCHLORIDE
     Indication: Nasopharyngitis
     Dosage: 20 MILLILITER, SINGLE
     Route: 048
     Dates: start: 20211105, end: 20211105

REACTIONS (3)
  - Loss of consciousness [Recovered/Resolved]
  - Product container seal issue [Unknown]
  - Diarrhoea [Recovered/Resolved]

NARRATIVE: CASE EVENT DATE: 20211105
